FAERS Safety Report 19774686 (Version 1)
Quarter: 2021Q3

REPORT INFORMATION
  Report Type: Spontaneous
  Country: US (occurrence: US)
  Receive Date: 20210901
  Receipt Date: 20210901
  Transmission Date: 20211014
  Serious: No
  Sender: FDA-Public Use
  Company Number: US-ELI_LILLY_AND_COMPANY-US202109000099

PATIENT
  Sex: Male

DRUGS (5)
  1. HUMALOG KWIKPEN [Suspect]
     Active Substance: INSULIN LISPRO
     Indication: DIABETES MELLITUS
     Dosage: 25 U, UNKNOWN(15?25 UNITS)
     Route: 058
  2. HUMALOG KWIKPEN [Suspect]
     Active Substance: INSULIN LISPRO
     Dosage: 25 U, UNKNOWN(15?25 UNITS)
     Route: 058
  3. HUMALOG KWIKPEN [Suspect]
     Active Substance: INSULIN LISPRO
     Indication: DIABETES MELLITUS
     Dosage: 25 U, UNKNOWN(15?25 UNITS)
     Route: 058
  4. HUMALOG KWIKPEN [Suspect]
     Active Substance: INSULIN LISPRO
     Dosage: 25 U, UNKNOWN(15?25 UNITS)
     Route: 058
  5. CORTISOL [CORTISONE ACETATE] [Suspect]
     Active Substance: CORTISONE ACETATE
     Indication: BACK PAIN
     Dosage: UNK UNK, UNKNOWN
     Route: 065

REACTIONS (4)
  - Blood glucose increased [Unknown]
  - Glycosylated haemoglobin increased [Unknown]
  - Drug ineffective [Unknown]
  - Stress [Unknown]
